FAERS Safety Report 19503853 (Version 1)
Quarter: 2021Q3

REPORT INFORMATION
  Report Type: Spontaneous
  Country: TR (occurrence: TR)
  Receive Date: 20210707
  Receipt Date: 20210707
  Transmission Date: 20211014
  Serious: Yes (Other)
  Sender: FDA-Public Use
  Company Number: TR-PFIZER INC-2021768838

PATIENT
  Age: 8 Year
  Sex: Female

DRUGS (1)
  1. GENOTROPIN GOQUICK [Suspect]
     Active Substance: SOMATROPIN
     Indication: GROWTH HORMONE DEFICIENCY
     Dosage: 0.60 MG, DAILY ( 7 TIMES IN A WEEK)
     Dates: start: 20210507

REACTIONS (3)
  - Urinary tract infection [Recovering/Resolving]
  - Proteinuria [Recovering/Resolving]
  - Blood urine present [Recovering/Resolving]

NARRATIVE: CASE EVENT DATE: 20210622
